FAERS Safety Report 9923819 (Version 2)
Quarter: 2014Q1

REPORT INFORMATION
  Report Type: Spontaneous
  Country: US (occurrence: US)
  Receive Date: 20140225
  Receipt Date: 20140225
  Transmission Date: 20141002
  Serious: No
  Sender: FDA-Public Use
  Company Number: US-AMGEN-USASP2014000020

PATIENT
  Age: 66 Year
  Sex: Female
  Weight: 50.34 kg

DRUGS (9)
  1. ENBREL [Suspect]
     Indication: PRODUCT USED FOR UNKNOWN INDICATION
     Dosage: 50 MG, QWK
     Route: 058
     Dates: start: 200910
  2. DAYPRO [Concomitant]
     Dosage: 600 MG, UNK
  3. SERTRALINE [Concomitant]
     Dosage: 25 MG, UNK
  4. LIPITOR [Concomitant]
     Dosage: 10 MG, UNK
  5. ISOSORB MONO [Concomitant]
     Dosage: 30 MG, UNK
  6. PREVACID [Concomitant]
     Dosage: 30 MG, UNK
  7. METOPROLOL TARTRATE [Concomitant]
     Dosage: 25 MG, UNK
  8. CALCIUM + VITAMIN D                /01483701/ [Concomitant]
     Dosage: 500 UNK, UNK
  9. ASPIRIN [Concomitant]
     Dosage: 81 MG, UNK

REACTIONS (1)
  - Fungal infection [Recovered/Resolved]
